FAERS Safety Report 8254860-7 (Version None)
Quarter: 2012Q2

REPORT INFORMATION
  Report Type: 
  Country: None (occurrence: None)
  Receive Date: 20120403
  Receipt Date: 20120323
  Transmission Date: 20120825
  Serious: Yes (Life-Threatening)
  Sender: FDA-Public Use
  Company Number: JP-GENZYME-THYM-1003192

PATIENT
  Sex: Female
  Weight: 50 kg

DRUGS (5)
  1. OMEPRAZOLE SODIUM [Concomitant]
     Indication: GASTRITIS PROPHYLAXIS
     Dosage: UNK
     Route: 065
     Dates: start: 20100124, end: 20100216
  2. THYMOGLOBULIN [Suspect]
     Indication: APLASTIC ANAEMIA
     Dosage: 175 MG, QD
     Route: 042
     Dates: start: 20100113, end: 20100117
  3. SULFAMETHOXAZOLE W [Concomitant]
     Indication: ANTIFUNGAL PROPHYLAXIS
     Dosage: UNK
     Route: 065
     Dates: start: 20100113
  4. PREDNISOLONE [Concomitant]
     Indication: PREMEDICATION
     Dosage: UNK
     Route: 065
     Dates: start: 20100113, end: 20100121
  5. CYCLOSPORINE [Concomitant]
     Indication: APLASTIC ANAEMIA
     Dosage: UNK
     Route: 065
     Dates: start: 20100113, end: 20100207

REACTIONS (3)
  - ACUTE RESPIRATORY FAILURE [None]
  - INFLUENZA [None]
  - OXYGEN SATURATION DECREASED [None]
